FAERS Safety Report 12380745 (Version 2)
Quarter: 2016Q2

REPORT INFORMATION
  Report Type: Spontaneous
  Country: US (occurrence: US)
  Receive Date: 20160518
  Receipt Date: 20160523
  Transmission Date: 20160815
  Serious: No
  Sender: FDA-Public Use
  Company Number: US-JNJFOC-20160503250

PATIENT
  Sex: Female

DRUGS (2)
  1. DURAGESIC [Suspect]
     Active Substance: FENTANYL
     Indication: SPINAL OPERATION
     Route: 062
     Dates: start: 1991
  2. DURAGESIC [Suspect]
     Active Substance: FENTANYL
     Indication: SPINAL OPERATION
     Route: 062
     Dates: start: 2009

REACTIONS (8)
  - Wrong technique in product usage process [Unknown]
  - Product quality issue [Unknown]
  - Wrong technique in product usage process [Unknown]
  - Underdose [Unknown]
  - Drug dose omission [Unknown]
  - Dry skin [Unknown]
  - Product adhesion issue [Unknown]
  - Drug ineffective [Unknown]

NARRATIVE: CASE EVENT DATE: 1991
